FAERS Safety Report 4402753-5 (Version None)
Quarter: 2004Q3

REPORT INFORMATION
  Report Type: 
  Country: None (occurrence: None)
  Receive Date: 20040720
  Receipt Date: 20040720
  Transmission Date: 20050211
  Serious: Yes (Disabling)
  Sender: FDA-Public Use
  Company Number: None

PATIENT
  Age: 38 Year
  Sex: Male
  Weight: 72.5755 kg

DRUGS (3)
  1. LEVAQUIN [Suspect]
     Indication: BARTONELLOSIS
     Dosage: 500 MG DAY ORAL
     Route: 048
     Dates: start: 20040514, end: 20040519
  2. LEVAQUIN [Suspect]
     Indication: LYME DISEASE
     Dosage: 500 MG DAY ORAL
     Route: 048
     Dates: start: 20040514, end: 20040519
  3. BICILLIN L-A [Concomitant]

REACTIONS (3)
  - PAIN IN EXTREMITY [None]
  - TENDON DISORDER [None]
  - TREATMENT NONCOMPLIANCE [None]
